FAERS Safety Report 5081529-2 (Version None)
Quarter: 2006Q3

REPORT INFORMATION
  Report Type: 
  Country: None (occurrence: None)
  Receive Date: 20060815
  Receipt Date: 20060815
  Transmission Date: 20061208
  Serious: Yes (Hospitalization, Disabling)
  Sender: FDA-Public Use
  Company Number: None

PATIENT
  Sex: Female
  Weight: 68.0396 kg

DRUGS (5)
  1. CYMBALTA [Suspect]
     Dosage: 30 MG
  2. ALTACE [Concomitant]
  3. COREG [Concomitant]
  4. LASIX [Concomitant]
  5. POTASSIUM CHLORIDE [Concomitant]

REACTIONS (5)
  - DYSURIA [None]
  - FALL [None]
  - IMPAIRED WORK ABILITY [None]
  - LOWER LIMB FRACTURE [None]
  - PAIN [None]
